FAERS Safety Report 10241569 (Version 3)
Quarter: 2014Q3

REPORT INFORMATION
  Report Type: Spontaneous
  Country: GB (occurrence: GB)
  Receive Date: 20140617
  Receipt Date: 20140922
  Transmission Date: 20150326
  Serious: Yes (Other)
  Sender: FDA-Public Use
  Company Number: GB-JNJFOC-20140604883

PATIENT
  Sex: Female

DRUGS (1)
  1. RISPERDAL CONSTA [Suspect]
     Active Substance: RISPERIDONE
     Indication: INJURY ASSOCIATED WITH DEVICE
     Route: 065

REACTIONS (2)
  - Exposure to contaminated device [Unknown]
  - Injury associated with device [Recovered/Resolved]
